FAERS Safety Report 5243881-4 (Version None)
Quarter: 2007Q1

REPORT INFORMATION
  Report Type: 
  Country: None (occurrence: None)
  Receive Date: 20070220
  Receipt Date: 20070220
  Transmission Date: 20070707
  Serious: Yes (Disabling, Other)
  Sender: FDA-Public Use
  Company Number: None

PATIENT
  Age: 31 Year
  Sex: Female
  Weight: 61.2356 kg

DRUGS (1)
  1. PROGESTERONE [Suspect]
     Indication: IN VITRO FERTILISATION
     Dosage: 1 CC DAILY IM
     Route: 030
     Dates: start: 20061121, end: 20061211

REACTIONS (8)
  - ABORTION SPONTANEOUS [None]
  - DRUG EXPOSURE DURING PREGNANCY [None]
  - EOSINOPHILIC PNEUMONIA [None]
  - GASTRIC DISORDER [None]
  - HEART RATE INCREASED [None]
  - LABORATORY TEST ABNORMAL [None]
  - PREGNANCY [None]
  - VIRAL INFECTION [None]
